FAERS Safety Report 20064972 (Version 2)
Quarter: 2021Q4

REPORT INFORMATION
  Report Type: Spontaneous
  Country: US (occurrence: US)
  Receive Date: 20211113
  Receipt Date: 20211127
  Transmission Date: 20220303
  Serious: No
  Sender: FDA-Public Use
  Company Number: US-LUPIN PHARMACEUTICALS INC.-2021-22128

PATIENT
  Age: 87 Year
  Sex: Female
  Weight: 72.57 kg

DRUGS (1)
  1. MOXIFLOXACIN [Suspect]
     Active Substance: MOXIFLOXACIN
     Indication: Eye infection
     Dosage: 1 DROP, BID
     Route: 065
     Dates: start: 20211027

REACTIONS (5)
  - Product delivery mechanism issue [Unknown]
  - Wrong technique in product usage process [Unknown]
  - Liquid product physical issue [Unknown]
  - Product substitution issue [Unknown]
  - No adverse event [Unknown]

NARRATIVE: CASE EVENT DATE: 20211027
